FAERS Safety Report 14536562 (Version 1)
Quarter: 2018Q1

REPORT INFORMATION
  Report Type: Spontaneous
  Country: US (occurrence: US)
  Receive Date: 20180215
  Receipt Date: 20180215
  Transmission Date: 20180509
  Serious: Yes (Hospitalization)
  Sender: FDA-Public Use
  Company Number: None

PATIENT
  Age: 64 Year
  Sex: Female
  Weight: 56.8 kg

DRUGS (14)
  1. B-1 [Concomitant]
  2. OXYCODONE [Suspect]
     Active Substance: OXYCODONE
     Indication: PAIN
  3. APAP [Concomitant]
     Active Substance: ACETAMINOPHEN
  4. TRAMADOL. [Suspect]
     Active Substance: TRAMADOL
  5. ROCALTROL [Concomitant]
     Active Substance: CALCITRIOL
  6. HYDROMORPHONE [Suspect]
     Active Substance: HYDROMORPHONE
  7. LIPITOR [Concomitant]
     Active Substance: ATORVASTATIN CALCIUM
  8. DOUNEB [Concomitant]
  9. HUMALOG [Concomitant]
     Active Substance: INSULIN LISPRO
  10. LACTOBACILLUS ACIDOPHILUS\LACTOBACILLUS BULGARICUS [Concomitant]
     Active Substance: LACTOBACILLUS ACIDOPHILUS\LACTOBACILLUS DELBRUECKII SUBSP. BULGARICUS
  11. COREG [Concomitant]
     Active Substance: CARVEDILOL
  12. SENSIPAR [Concomitant]
     Active Substance: CINACALCET HYDROCHLORIDE
  13. DURAGESIC [Suspect]
     Active Substance: FENTANYL
     Indication: PAIN
     Dosage: 75MCG Q3 DAYS TOP
     Route: 061
  14. ASA [Concomitant]
     Active Substance: ASPIRIN

REACTIONS (6)
  - Lethargy [None]
  - Hypotension [None]
  - Mental status changes [None]
  - Decreased appetite [None]
  - Acute myocardial infarction [None]
  - Pain [None]

NARRATIVE: CASE EVENT DATE: 20170615
